FAERS Safety Report 21403952 (Version 1)
Quarter: 2022Q4

REPORT INFORMATION
  Report Type: Spontaneous
  Country: SE (occurrence: SE)
  Receive Date: 20221003
  Receipt Date: 20221003
  Transmission Date: 20230112
  Serious: Yes (Hospitalization)
  Sender: FDA-Public Use
  Company Number: SE-ANIPHARMA-2013-SE-000001

PATIENT
  Age: 71 Year
  Sex: Female

DRUGS (7)
  1. ATACAND [Suspect]
     Active Substance: CANDESARTAN CILEXETIL
     Indication: Product used for unknown indication
     Route: 048
  2. ATENOLOL [Suspect]
     Active Substance: ATENOLOL
     Route: 048
  3. TICAGRELOR [Suspect]
     Active Substance: TICAGRELOR
     Indication: Prophylaxis
     Route: 048
  4. ASPIRIN [Suspect]
     Active Substance: ASPIRIN
     Indication: Product used for unknown indication
     Route: 065
  5. FELODIPINE [Concomitant]
     Active Substance: FELODIPINE
     Route: 065
  6. SIMVASTATIN [Concomitant]
     Active Substance: SIMVASTATIN
     Route: 065
  7. DOXYCYCLINE [Concomitant]
     Active Substance: DOXYCYCLINE
     Route: 065

REACTIONS (2)
  - Hypotension [Unknown]
  - Epistaxis [Unknown]

NARRATIVE: CASE EVENT DATE: 20131110
